FAERS Safety Report 6094301-1 (Version None)
Quarter: 2009Q1

REPORT INFORMATION
  Report Type: 
  Country: None (occurrence: None)
  Receive Date: 20090226
  Receipt Date: 20090219
  Transmission Date: 20090719
  Serious: Yes (Other)
  Sender: FDA-Public Use
  Company Number: US-JNJCH-2009004917

PATIENT
  Age: 44 Year
  Sex: Female
  Weight: 56.7 kg

DRUGS (1)
  1. LISTERINE WHITENING PRE-BRUSH RINSE [Suspect]
     Indication: DENTAL CARE
     Dosage: TEXT:3 TEASPOONS TWICE DAILY FOR 2 DAYS
     Route: 048
     Dates: start: 20090215, end: 20090216

REACTIONS (7)
  - APPLICATION SITE IRRITATION [None]
  - BACTERIAL INFECTION [None]
  - JAW DISORDER [None]
  - LOCAL SWELLING [None]
  - PAIN [None]
  - SALIVARY DUCT OBSTRUCTION [None]
  - SWELLING FACE [None]
